FAERS Safety Report 8133910-2 (Version None)
Quarter: 2012Q1

REPORT INFORMATION
  Report Type: 
  Country: None (occurrence: None)
  Receive Date: 20120213
  Receipt Date: 20120208
  Transmission Date: 20120608
  Serious: Yes (Death, Hospitalization, Disabling)
  Sender: FDA-Public Use
  Company Number: BR-ASTRAZENECA-2011SE02549

PATIENT
  Age: 70 Year
  Sex: Male
  Weight: 71 kg

DRUGS (1)
  1. ATACAND HCT [Suspect]
     Indication: HYPERTENSION
     Dosage: 16/12.5 MG
     Route: 048
     Dates: start: 20090101

REACTIONS (9)
  - FEMUR FRACTURE [None]
  - DRUG INEFFECTIVE [None]
  - RENAL FAILURE [None]
  - EMBOLISM [None]
  - CEREBROVASCULAR ACCIDENT [None]
  - INFECTION [None]
  - PNEUMONIA [None]
  - FALL [None]
  - HYPERTENSION [None]
